FAERS Safety Report 11337210 (Version 1)
Quarter: 2015Q3

REPORT INFORMATION
  Report Type: Spontaneous
  Country: FR (occurrence: FR)
  Receive Date: 20150804
  Receipt Date: 20150804
  Transmission Date: 20151125
  Serious: Yes (Hospitalization)
  Sender: FDA-Public Use
  Company Number: FR-ACTAVIS-2015-16313

PATIENT
  Age: 58 Year
  Sex: Female

DRUGS (1)
  1. PYLERA [Suspect]
     Active Substance: BISMUTH SUBCITRATE POTASSIUM\METRONIDAZOLE\TETRACYCLINE HYDROCHLORIDE
     Indication: HELICOBACTER INFECTION
     Dosage: UNK
     Route: 048
     Dates: start: 20140523, end: 20140602

REACTIONS (7)
  - Tinnitus [Recovered/Resolved]
  - Paraesthesia [Recovered/Resolved]
  - Malaise [Recovered/Resolved]
  - Visual impairment [Recovered/Resolved]
  - Anxiety [Recovered/Resolved]
  - Neuropathy peripheral [Recovered/Resolved]
  - Tachycardia [Recovered/Resolved]

NARRATIVE: CASE EVENT DATE: 201406
